FAERS Safety Report 7607170-2 (Version None)
Quarter: 2011Q3

REPORT INFORMATION
  Report Type: 
  Country: None (occurrence: None)
  Receive Date: 20110713
  Receipt Date: 20110630
  Transmission Date: 20111222
  Serious: Yes (Hospitalization)
  Sender: FDA-Public Use
  Company Number: JP-ELI_LILLY_AND_COMPANY-JP201104006630

PATIENT
  Sex: Female

DRUGS (2)
  1. LOCHOLEST [Concomitant]
     Dosage: 30 MG, QD
     Route: 048
     Dates: start: 20060101
  2. FORTEO [Suspect]
     Indication: OSTEOPOROSIS
     Dosage: 20 UG, QD
     Route: 058
     Dates: start: 20110401, end: 20110615

REACTIONS (4)
  - INJECTION SITE HAEMATOMA [None]
  - DIVERTICULITIS INTESTINAL HAEMORRHAGIC [None]
  - ANAEMIA [None]
  - NAUSEA [None]
